FAERS Safety Report 15864032 (Version 1)
Quarter: 2019Q1

REPORT INFORMATION
  Report Type: Report from Study
  Country: None (occurrence: HK)
  Receive Date: 20190124
  Receipt Date: 20190124
  Transmission Date: 20190417
  Serious: Yes (Other)
  Sender: FDA-Public Use
  Company Number: HK-BAUSCH-BL-2019-002105

PATIENT

DRUGS (7)
  1. SIROLIMUS. [Suspect]
     Active Substance: SIROLIMUS
     Route: 065
  2. PREDNISOLONE. [Suspect]
     Active Substance: PREDNISOLONE
     Dosage: MAINTENANCE DOSE OF 5-7.5 MG/D AT APPROXIMATELY 5 MONTHS
     Route: 048
  3. PREDNISOLONE. [Suspect]
     Active Substance: PREDNISOLONE
     Indication: LUPUS NEPHRITIS
     Dosage: IMMUNOSUPPRESIVE TREATMENT
     Route: 048
  4. SIROLIMUS. [Suspect]
     Active Substance: SIROLIMUS
     Dosage: MEAN ACHIEVED SIROLIMUS DOSAGE
     Route: 065
  5. SIROLIMUS. [Suspect]
     Active Substance: SIROLIMUS
     Indication: LUPUS NEPHRITIS
     Dosage: ON FIRST DAY
     Route: 065
  6. PREDNISOLONE. [Suspect]
     Active Substance: PREDNISOLONE
     Dosage: IMMUNOSUPPRESIVE TREATMENT
     Route: 048
  7. PREDNISOLONE. [Suspect]
     Active Substance: PREDNISOLONE
     Dosage: INCREASED DOSE
     Route: 048

REACTIONS (2)
  - Rash [Unknown]
  - Thrombocytopenia [Recovered/Resolved]
